FAERS Safety Report 5379165-3 (Version None)
Quarter: 2007Q3

REPORT INFORMATION
  Report Type: 
  Country: None (occurrence: None)
  Receive Date: 20070705
  Receipt Date: 20070627
  Transmission Date: 20080115
  Serious: Yes (Other)
  Sender: FDA-Public Use
  Company Number: PH-BRISTOL-MYERS SQUIBB COMPANY-13827423

PATIENT
  Age: 49 Year
  Sex: Male

DRUGS (5)
  1. BARACLUDE [Suspect]
     Indication: ALANINE AMINOTRANSFERASE INCREASED
     Route: 048
     Dates: start: 20070608
  2. BARACLUDE [Suspect]
     Indication: HEPATITIS B DNA ASSAY
     Route: 048
     Dates: start: 20070608
  3. DOXORUBICIN HCL [Concomitant]
     Indication: LYMPHOMA
  4. VINCRISTINE [Concomitant]
     Indication: LYMPHOMA
  5. PREDNISONE TAB [Concomitant]
     Indication: LYMPHOMA

REACTIONS (1)
  - NEUTROPENIA [None]
